FAERS Safety Report 9350623 (Version 2)
Quarter: 2013Q3

REPORT INFORMATION
  Report Type: Report from Study
  Country: US (occurrence: US)
  Receive Date: 20130617
  Receipt Date: 20130705
  Transmission Date: 20140515
  Serious: Yes (Hospitalization)
  Sender: FDA-Public Use
  Company Number: US-ROCHE-1234620

PATIENT
  Age: 72 Year
  Sex: Female

DRUGS (15)
  1. PEG-INTERFERON ALFA 2A [Suspect]
     Indication: CHRONIC HEPATITIS C
     Route: 058
     Dates: start: 20130410, end: 20130515
  2. TELAPREVIR [Suspect]
     Indication: CHRONIC HEPATITIS C
     Route: 048
     Dates: start: 20130410, end: 20130514
  3. RIBAVIRIN [Suspect]
     Indication: CHRONIC HEPATITIS C
     Route: 048
     Dates: start: 20130410, end: 20130520
  4. FOSAMAX [Concomitant]
     Route: 065
     Dates: end: 20130522
  5. MOBIC [Concomitant]
     Route: 065
     Dates: end: 20130522
  6. BLOPRESS [Concomitant]
     Route: 065
     Dates: start: 20070509, end: 20130522
  7. REBAMIPIDE [Concomitant]
     Route: 065
     Dates: start: 20130412
  8. ANTEBATE [Concomitant]
     Route: 065
     Dates: start: 20130416
  9. OLOPATADINE HYDROCHLORIDE [Concomitant]
     Route: 065
     Dates: start: 20130416, end: 20130522
  10. CALONAL [Concomitant]
     Route: 065
     Dates: start: 20130417
  11. ALLOPURINOL [Concomitant]
     Route: 065
     Dates: start: 20130417, end: 20130522
  12. BAKTAR [Concomitant]
     Route: 065
     Dates: start: 20130521, end: 20130528
  13. CEFTRIAXONE [Concomitant]
     Route: 042
     Dates: start: 20130521
  14. METHYLPREDNISOLONE SODIUM SUCCINATE [Concomitant]
     Indication: INTERSTITIAL LUNG DISEASE
     Dosage: DAILY
     Route: 065
     Dates: start: 20130521, end: 20130524
  15. METHYLPREDNISOLONE SODIUM SUCCINATE [Concomitant]
     Dosage: DAILY
     Route: 065
     Dates: start: 20130524

REACTIONS (2)
  - Interstitial lung disease [Not Recovered/Not Resolved]
  - Malaise [Not Recovered/Not Resolved]
